FAERS Safety Report 7341485-0 (Version None)
Quarter: 2011Q1

REPORT INFORMATION
  Report Type: 
  Country: None (occurrence: None)
  Receive Date: 20110309
  Receipt Date: 20110118
  Transmission Date: 20110831
  Serious: Yes (Hospitalization, Other)
  Sender: FDA-Public Use
  Company Number: PHHY2011CH04797

PATIENT
  Age: 66 Year
  Sex: Male

DRUGS (10)
  1. ASPIRIN [Concomitant]
     Dosage: 100 MG/DAY
  2. PRADIF [Concomitant]
     Dosage: 0.4 MG/DAY
  3. NEXIUM [Concomitant]
     Dosage: 40 MG/DAY
  4. PRAVASTATIN [Concomitant]
     Dosage: 20 MG/DAY
  5. COVERSUM [Concomitant]
     Dosage: 5 MG/DAY
  6. METFORMIN [Suspect]
     Dosage: 2 G/DAY
     Route: 048
     Dates: start: 20060101, end: 20100101
  7. BISOPROLOL FUMARATE [Concomitant]
     Dosage: 5 MG/DAY
  8. ADALAT CC [Concomitant]
     Dosage: 30 MG/DAY
  9. MARCOUMAR [Concomitant]
  10. INSULIN [Concomitant]

REACTIONS (7)
  - LACTIC ACIDOSIS [None]
  - DRUG PRESCRIBING ERROR [None]
  - CARDIOGENIC SHOCK [None]
  - ALANINE AMINOTRANSFERASE INCREASED [None]
  - PNEUMONIA [None]
  - ACUTE MYOCARDIAL INFARCTION [None]
  - RENAL IMPAIRMENT [None]
